FAERS Safety Report 5101141-6 (Version None)
Quarter: 2006Q3

REPORT INFORMATION
  Report Type: 
  Country: None (occurrence: None)
  Receive Date: 20060911
  Receipt Date: 20060901
  Transmission Date: 20061208
  Serious: Yes (Other)
  Sender: FDA-Public Use
  Company Number: PHBS2006JP13493

PATIENT
  Age: 94 Year
  Sex: Female

DRUGS (8)
  1. TEGRETOL [Suspect]
     Route: 048
  2. THYRADIN [Concomitant]
  3. LOXONIN [Concomitant]
  4. MUCOSTA [Concomitant]
  5. THEO-DUR [Concomitant]
  6. DIGOXIN [Concomitant]
  7. NITRODERM [Concomitant]
  8. LASIX [Suspect]

REACTIONS (1)
  - BLOOD POTASSIUM DECREASED [None]
